FAERS Safety Report 7178954-2 (Version None)
Quarter: 2010Q4

REPORT INFORMATION
  Report Type: 
  Country: None (occurrence: None)
  Receive Date: 20101217
  Receipt Date: 20101217
  Transmission Date: 20110411
  Serious: No
  Sender: FDA-Public Use
  Company Number: None

PATIENT
  Sex: Male
  Weight: 86.3 kg

DRUGS (1)
  1. CAMPATH [Suspect]
     Dosage: 313 MG

REACTIONS (1)
  - NEUTROPENIA [None]
